FAERS Safety Report 24718797 (Version 1)
Quarter: 2024Q4

REPORT INFORMATION
  Report Type: Report from Study
  Country: US (occurrence: US)
  Receive Date: 20241210
  Receipt Date: 20241210
  Transmission Date: 20250115
  Serious: No
  Sender: INCYTE
  Company Number: US-EVENT-000645

PATIENT

DRUGS (1)
  1. JAKAFI [Suspect]
     Active Substance: RUXOLITINIB
     Dosage: UNK (DOSE AND FREQUENCY UNKNOWN TO REPORTER)
     Route: 065

REACTIONS (2)
  - Splenomegaly [Not Recovered/Not Resolved]
  - Weight increased [Not Recovered/Not Resolved]
